FAERS Safety Report 18406573 (Version 1)
Quarter: 2020Q4

REPORT INFORMATION
  Report Type: Report from Study
  Country: ZA (occurrence: ZA)
  Receive Date: 20201020
  Receipt Date: 20201020
  Transmission Date: 20210114
  Serious: Yes (Hospitalization)
  Sender: FDA-Public Use
  Company Number: NVSC2020ZA279496

PATIENT
  Sex: Male

DRUGS (3)
  1. JALRA [Suspect]
     Active Substance: VILDAGLIPTIN
     Indication: CARDIAC FAILURE
     Dosage: 50 MG/KG, UNKNOWN
     Route: 048
  2. ENTRESTO [Suspect]
     Active Substance: SACUBITRIL\VALSARTAN
     Indication: CARDIAC FAILURE
     Dosage: 50 MG, BID
     Route: 048
  3. ENALAPRIL MALEATE. [Suspect]
     Active Substance: ENALAPRIL MALEATE
     Indication: CARDIAC FAILURE
     Dosage: UNK UNK, BID
     Route: 048

REACTIONS (7)
  - Cardiac failure chronic [Unknown]
  - Ejection fraction decreased [Unknown]
  - Dyspnoea [Unknown]
  - Peripheral swelling [Unknown]
  - Abdominal distension [Unknown]
  - Fatigue [Unknown]
  - Pulmonary oedema [Unknown]
